FAERS Safety Report 9888991 (Version 1)
Quarter: 2014Q1

REPORT INFORMATION
  Report Type: Spontaneous
  Country: CA (occurrence: CA)
  Receive Date: 20140211
  Receipt Date: 20140211
  Transmission Date: 20141002
  Serious: Yes (Hospitalization, Other)
  Sender: FDA-Public Use
  Company Number: CA-ASTRAZENECA-2014SE07996

PATIENT
  Age: 46 Year
  Sex: Female

DRUGS (3)
  1. SEROQUEL [Suspect]
     Route: 048
  2. ABILIFY [Interacting]
     Route: 048
  3. SAPHRIS [Interacting]
     Route: 048

REACTIONS (4)
  - Drug interaction [Unknown]
  - Urinary retention [Unknown]
  - Underdose [Unknown]
  - Inappropriate schedule of drug administration [Unknown]
